FAERS Safety Report 8432996 (Version 3)
Quarter: 2015Q1

REPORT INFORMATION
  Report Type: Report from Study
  Country: US (occurrence: US)
  Receive Date: 20120229
  Receipt Date: 20150313
  Transmission Date: 20150721
  Serious: Yes (Death)
  Sender: FDA-Public Use
  Company Number: US-ROCHE-1043957

PATIENT
  Age: 74 Year
  Sex: Male
  Weight: 82.63 kg

DRUGS (3)
  1. XELODA [Suspect]
     Active Substance: CAPECITABINE
     Dosage: 3 TABLETS 2 TIMES PER DAY FOR 14 DAYS THEN OFF FOR 7 DAYS
     Route: 048
  2. XELODA [Suspect]
     Active Substance: CAPECITABINE
     Indication: SQUAMOUS CELL CARCINOMA
     Route: 048
     Dates: start: 20120124
  3. XELODA [Suspect]
     Active Substance: CAPECITABINE
     Dosage: 3 TABLETS 2 TIMES PER DAY FOR 14 DAYS THEN OFF FOR 7 DAYS
     Route: 048

REACTIONS (1)
  - Metastatic squamous cell carcinoma [Fatal]

NARRATIVE: CASE EVENT DATE: 20120226
